FAERS Safety Report 12790459 (Version 1)
Quarter: 2016Q3

REPORT INFORMATION
  Report Type: Spontaneous
  Country: CN (occurrence: CN)
  Receive Date: 20160929
  Receipt Date: 20160929
  Transmission Date: 20161109
  Serious: Yes (Death, Other)
  Sender: FDA-Public Use
  Company Number: CN-BAXTER-2016BAX048906

PATIENT
  Age: 76 Year
  Sex: Female
  Weight: 52 kg

DRUGS (6)
  1. 0.9% SODIUM CHLORIDE INJECTION [Suspect]
     Active Substance: SODIUM CHLORIDE
     Indication: FLUID REPLACEMENT
     Route: 041
     Dates: start: 20160220, end: 20160220
  2. CEFUROXIME SODIUM. [Suspect]
     Active Substance: CEFUROXIME SODIUM
     Indication: LUNG INFECTION
     Dosage: AS A PART OF SET 1
     Route: 041
     Dates: start: 20160220, end: 20160220
  3. DIPROPHYLLINE [Suspect]
     Active Substance: DYPHYLLINE
     Indication: ASTHMA
     Dosage: AS A PART OF SET 2
     Route: 041
     Dates: start: 20160220, end: 20160220
  4. 0.9% SODIUM CHLORIDE INJECTION [Suspect]
     Active Substance: SODIUM CHLORIDE
     Dosage: AS A PART OF SET 4 (TO FLUSH THE INFUSION TUBE)
     Route: 041
     Dates: start: 20160220, end: 20160220
  5. 0.9% SODIUM CHLORIDE INJECTION [Suspect]
     Active Substance: SODIUM CHLORIDE
     Indication: CATHETER MANAGEMENT
     Route: 041
     Dates: start: 20160220, end: 20160220
  6. CEFUROXIME SODIUM. [Suspect]
     Active Substance: CEFUROXIME SODIUM
     Dosage: AS A PART OF SET 3
     Route: 041
     Dates: start: 20160220, end: 20160220

REACTIONS (4)
  - Cyanosis [Unknown]
  - Depressed level of consciousness [Unknown]
  - Sudden death [Fatal]
  - Dyspnoea [Unknown]

NARRATIVE: CASE EVENT DATE: 20160220
